FAERS Safety Report 9251000 (Version 1)
Quarter: 2013Q1

REPORT INFORMATION
  Report Type: Spontaneous
  Country: US (occurrence: None)
  Receive Date: 20130305
  Receipt Date: 20130305
  Transmission Date: 20140127
  Serious: Yes (Other)
  Sender: FDA-Public Use
  Company Number: 163-21880-12081706

PATIENT
  Age: 70 Year
  Sex: Female

DRUGS (7)
  1. REVLIMID (LENALIDOMIDE) (CAPSULES) [Suspect]
     Indication: PLASMA CELL MYELOMA
     Dosage: 5MG, 21 IN 21 D, PO
     Route: 048
     Dates: start: 20090324
  2. ADVIL (IBUPROFEN) [Concomitant]
  3. LUTEIN VISION BLEND (LUTEIN-VISION) [Concomitant]
  4. VITAMIN D (ERGOCALCIFEROL) [Concomitant]
  5. ASPIRIN LOW DOSE (ACETYLSALICYLIC ACID) [Concomitant]
  6. CALCIUM (CALCIUM) [Concomitant]
  7. DEXAMETHASONE (DEXAMETHASONE) [Concomitant]

REACTIONS (5)
  - Dizziness [None]
  - Pruritus [None]
  - Hyperhidrosis [None]
  - Cough [None]
  - Nasal congestion [None]
